FAERS Safety Report 5133365-6 (Version None)
Quarter: 2006Q4

REPORT INFORMATION
  Report Type: 
  Country: None (occurrence: None)
  Receive Date: 20060831
  Receipt Date: 20060504
  Transmission Date: 20070319
  Serious: No
  Sender: FDA-Public Use
  Company Number: 2006-BP-04982PF

PATIENT
  Age: 55 Year
  Sex: Female

DRUGS (2)
  1. SPIRIVA [Suspect]
     Indication: HYPERSENSITIVITY
     Dosage: 18 MCG (18 MCG,1 IN 1 D),IH
     Dates: start: 20060101
  2. THYROID MED [Concomitant]

REACTIONS (2)
  - APHONIA [None]
  - DYSPHONIA [None]
